FAERS Safety Report 7120798-1 (Version None)
Quarter: 2010Q4

REPORT INFORMATION
  Report Type: 
  Country: None (occurrence: None)
  Receive Date: 20101124
  Receipt Date: 20101116
  Transmission Date: 20110411
  Serious: Yes (Hospitalization, Disabling)
  Sender: FDA-Public Use
  Company Number: DK-JNJFOC-20101103863

PATIENT
  Sex: Male
  Weight: 86 kg

DRUGS (1)
  1. REMICADE [Suspect]
     Indication: CROHN'S DISEASE
     Route: 042

REACTIONS (3)
  - DEEP VEIN THROMBOSIS [None]
  - INFECTIOUS MONONUCLEOSIS [None]
  - PULMONARY EMBOLISM [None]
